FAERS Safety Report 9897318 (Version 1)
Quarter: 2014Q1

REPORT INFORMATION
  Report Type: Spontaneous
  Country: US (occurrence: US)
  Receive Date: 20140214
  Receipt Date: 20140214
  Transmission Date: 20141002
  Serious: Yes (Hospitalization)
  Sender: FDA-Public Use
  Company Number: US-JNJFOC-20140204203

PATIENT
  Age: 59 Year
  Sex: Female
  Weight: 111.13 kg

DRUGS (9)
  1. INVOKANA [Suspect]
     Indication: TYPE 2 DIABETES MELLITUS
     Route: 048
     Dates: start: 201312
  2. INVOKANA [Suspect]
     Indication: TYPE 2 DIABETES MELLITUS
     Route: 048
     Dates: start: 201310, end: 201312
  3. JANUVIA [Concomitant]
  4. GABAPENTIN [Concomitant]
     Indication: ARTHRITIS
  5. CELEBREX [Concomitant]
     Indication: ARTHRITIS
  6. ZYRTEC [Concomitant]
     Indication: MULTIPLE ALLERGIES
  7. SINGULAIR [Concomitant]
     Indication: LUNG DISORDER
  8. ADVAIR [Concomitant]
     Indication: LUNG DISORDER
  9. NICODERM PATCH [Concomitant]
     Indication: EX-TOBACCO USER

REACTIONS (5)
  - Pneumonia [Unknown]
  - Fungal infection [Recovered/Resolved]
  - Vulvovaginal dryness [Not Recovered/Not Resolved]
  - Pruritus [Not Recovered/Not Resolved]
  - Vulvovaginal discomfort [Not Recovered/Not Resolved]
